FAERS Safety Report 13400705 (Version 1)
Quarter: 2017Q2

REPORT INFORMATION
  Report Type: Spontaneous
  Country: US (occurrence: US)
  Receive Date: 20170404
  Receipt Date: 20170404
  Transmission Date: 20170830
  Serious: No
  Sender: FDA-Public Use
  Company Number: US-AMNEAL PHARMACEUTICALS-2017AMN00060

PATIENT
  Sex: Male
  Weight: 120.18 kg

DRUGS (3)
  1. IBUPROFEN. [Suspect]
     Active Substance: IBUPROFEN
     Indication: BACK PAIN
     Dosage: 800 MG, 2X/DAY
     Route: 048
  2. IBUPROFEN. [Suspect]
     Active Substance: IBUPROFEN
     Dosage: 600 MG, UNK (WITH FOOD)
     Route: 048
  3. XANDI [Concomitant]
     Indication: PROSTATE CANCER
     Dosage: 160 MG, 1X/DAY

REACTIONS (4)
  - Abdominal discomfort [Recovered/Resolved]
  - Pain [Unknown]
  - Back pain [Unknown]
  - Headache [Unknown]
